FAERS Safety Report 7403473-5 (Version None)
Quarter: 2011Q2

REPORT INFORMATION
  Report Type: 
  Country: None (occurrence: None)
  Receive Date: 20110408
  Receipt Date: 20110401
  Transmission Date: 20111010
  Serious: Yes (Other)
  Sender: FDA-Public Use
  Company Number: B0711486A

PATIENT
  Sex: Female

DRUGS (1)
  1. REVOLADE [Suspect]
     Route: 048

REACTIONS (1)
  - PLEURAL EFFUSION [None]
